FAERS Safety Report 17494228 (Version 1)
Quarter: 2020Q1

REPORT INFORMATION
  Report Type: Spontaneous
  Country: US (occurrence: US)
  Receive Date: 20200222
  Receipt Date: 20200222
  Transmission Date: 20200409
  Serious: No
  Sender: FDA-Public Use
  Company Number: None

PATIENT
  Age: 80 Year
  Sex: Female

DRUGS (1)
  1. TYKERB [Suspect]
     Active Substance: LAPATINIB DITOSYLATE
     Dosage: ?          OTHER DOSE:1250;?
     Route: 048

REACTIONS (2)
  - Incorrect dose administered [None]
  - Wrong schedule [None]

NARRATIVE: CASE EVENT DATE: 20200221
